FAERS Safety Report 7829844-0 (Version None)
Quarter: 2011Q4

REPORT INFORMATION
  Report Type: 
  Country: None (occurrence: None)
  Receive Date: 20111018
  Receipt Date: 20111007
  Transmission Date: 20120403
  Serious: Yes (Congenital Anomaly, Other)
  Sender: FDA-Public Use
  Company Number: GER/GER/11/0021485

PATIENT

DRUGS (6)
  1. FALITHROM (PHENPROCOUMON) [Suspect]
     Indication: PRODUCT USED FOR UNKNOWN INDICATION
     Dosage: TRANSPLACENTAL
     Route: 064
     Dates: start: 20091031, end: 20110113
  2. CYCLOSPORINE [Suspect]
     Indication: PRODUCT USED FOR UNKNOWN INDICATION
     Dosage: 150 MG, 2 IN 1 D, TRANSPLACENTAL
     Route: 064
     Dates: start: 20091031, end: 20110131
  3. RAMIPRIL [Suspect]
     Indication: PRODUCT USED FOR UNKNOWN INDICATION
     Dosage: TRANSPLACENTAL
     Route: 064
     Dates: start: 20101031, end: 20110126
  4. TORSEMIDE [Suspect]
     Indication: PRODUCT USED FOR UNKNOWN INDICATION
     Dosage: TRANSPLACENTAL
     Route: 064
     Dates: start: 20101031, end: 20110126
  5. PREDNISOLONE [Concomitant]
  6. ENOXAPARIN SODIUM [Concomitant]

REACTIONS (5)
  - MATERNAL DRUGS AFFECTING FOETUS [None]
  - FALLOT'S TETRALOGY [None]
  - SINGLE UMBILICAL ARTERY [None]
  - TRICUSPID VALVE INCOMPETENCE [None]
  - ABORTION INDUCED [None]
